FAERS Safety Report 5556931-2 (Version None)
Quarter: 2007Q4

REPORT INFORMATION
  Report Type: 
  Country: None (occurrence: None)
  Receive Date: 20071210
  Receipt Date: 20071210
  Transmission Date: 20080405
  Serious: Yes (Other)
  Sender: FDA-Public Use
  Company Number: None

PATIENT
  Age: 48 Year
  Sex: Male
  Weight: 83.9154 kg

DRUGS (1)
  1. ZICAM [Suspect]
     Indication: NASOPHARYNGITIS
     Dosage: ONE SQUIRT  ONCE  NASAL
     Route: 045
     Dates: start: 20071207, end: 20071207

REACTIONS (5)
  - INSOMNIA [None]
  - LACRIMATION INCREASED [None]
  - NASAL DISCOMFORT [None]
  - PAIN [None]
  - VISUAL DISTURBANCE [None]
